FAERS Safety Report 9952278 (Version 1)
Quarter: 2014Q1

REPORT INFORMATION
  Report Type: Report from Study
  Country: US (occurrence: US)
  Receive Date: 20140304
  Receipt Date: 20140304
  Transmission Date: 20141002
  Serious: No
  Sender: FDA-Public Use
  Company Number: US-ABBVIE-13P-163-1080090-00

PATIENT
  Age: 56 Year
  Sex: Female
  Weight: 49.94 kg

DRUGS (21)
  1. HUMIRA [Suspect]
     Indication: CROHN^S DISEASE
     Dosage: LOADING DOSE
     Dates: start: 20130421, end: 20130421
  2. LORTAB [Concomitant]
     Indication: NECK PAIN
  3. LORTAB [Concomitant]
     Indication: BACK PAIN
  4. LORTAB [Concomitant]
     Indication: PAIN
  5. SOMA [Concomitant]
     Indication: MUSCLE RELAXANT THERAPY
  6. SOMA [Concomitant]
     Indication: PAIN
  7. REMERON [Concomitant]
     Indication: INSOMNIA
     Dosage: AT BEDTIME
  8. REMERON [Concomitant]
     Indication: APPETITE DISORDER
  9. REMERON [Concomitant]
     Indication: DEPRESSION
  10. REMERON [Concomitant]
     Indication: ANXIETY
  11. FIORICET [Concomitant]
     Indication: HEADACHE
  12. VITAMIN B-12 [Concomitant]
     Indication: PERNICIOUS ANAEMIA
     Dosage: EVERY 1-2 WEEKS
  13. VITAMIN B-12 [Concomitant]
     Indication: VITAMIN B12 DECREASED
  14. ASACOL [Concomitant]
     Indication: DIARRHOEA
  15. ASACOL [Concomitant]
     Indication: CROHN^S DISEASE
  16. FOLIC ACID [Concomitant]
     Indication: ANAEMIA
  17. FOLIC ACID [Concomitant]
     Indication: CROHN^S DISEASE
  18. STEROID [Concomitant]
     Indication: CROHN^S DISEASE
     Dosage: WEANING OFF
  19. NEXIUM [Concomitant]
     Indication: GASTROOESOPHAGEAL REFLUX DISEASE
  20. PREDNISONE [Concomitant]
     Indication: CROHN^S DISEASE
  21. MULTIVITAMIN [Concomitant]
     Indication: SUPPLEMENTATION THERAPY

REACTIONS (6)
  - Dizziness [Not Recovered/Not Resolved]
  - Visual impairment [Not Recovered/Not Resolved]
  - Abdominal distension [Not Recovered/Not Resolved]
  - Headache [Recovering/Resolving]
  - Nausea [Recovering/Resolving]
  - Abdominal pain upper [Not Recovered/Not Resolved]
